FAERS Safety Report 13399732 (Version 1)
Quarter: 2017Q2

REPORT INFORMATION
  Report Type: Spontaneous
  Country: IT (occurrence: IT)
  Receive Date: 20170404
  Receipt Date: 20170404
  Transmission Date: 20170830
  Serious: Yes (Other)
  Sender: FDA-Public Use
  Company Number: IT-ACCORD-049777

PATIENT
  Age: 68 Year
  Sex: Male

DRUGS (5)
  1. SANDIMMUN [Concomitant]
     Active Substance: CYCLOSPORINE
  2. METHOTREXATE. [Suspect]
     Active Substance: METHOTREXATE
     Indication: PSORIATIC ARTHROPATHY
     Dosage: 7.5 MG WEEKLY
     Route: 048
     Dates: start: 20131221, end: 20160325
  3. DIBASE [Concomitant]
     Active Substance: CHOLECALCIFEROL
  4. SIMPONI [Suspect]
     Active Substance: GOLIMUMAB
     Indication: PSORIATIC ARTHROPATHY
     Dosage: 40 MG MONTHLY
     Route: 058
     Dates: start: 20130901, end: 20160325
  5. LANSOPRAZOLE. [Concomitant]
     Active Substance: LANSOPRAZOLE

REACTIONS (1)
  - Pleurisy [Recovering/Resolving]

NARRATIVE: CASE EVENT DATE: 20160325
